FAERS Safety Report 8518588-8 (Version None)
Quarter: 2012Q3

REPORT INFORMATION
  Report Type: 
  Country: None (occurrence: None)
  Receive Date: 20120718
  Receipt Date: 20110801
  Transmission Date: 20120928
  Serious: No
  Sender: FDA-Public Use
  Company Number: US-BRISTOL-MYERS SQUIBB COMPANY-13211495

PATIENT
  Age: 72 Year
  Sex: Male
  Weight: 73 kg

DRUGS (5)
  1. SIMVASTATIN [Concomitant]
  2. COUMADIN [Suspect]
     Indication: ATRIAL FIBRILLATION
  3. CRANBERRY [Concomitant]
  4. ATENOLOL [Concomitant]
  5. LISINOPRIL [Concomitant]

REACTIONS (2)
  - CONTUSION [None]
  - INTERNATIONAL NORMALISED RATIO FLUCTUATION [None]
